FAERS Safety Report 13362312 (Version 1)
Quarter: 2017Q1

REPORT INFORMATION
  Report Type: Spontaneous
  Country: US (occurrence: US)
  Receive Date: 20170323
  Receipt Date: 20170323
  Transmission Date: 20170429
  Serious: Yes (Other)
  Sender: FDA-Public Use
  Company Number: US-ELI_LILLY_AND_COMPANY-US201703007385

PATIENT
  Age: 64 Year
  Sex: Male

DRUGS (18)
  1. TYLENOL [Concomitant]
     Active Substance: ACETAMINOPHEN
     Dosage: UNK UNK, PRN
     Route: 048
  2. LIPITOR [Concomitant]
     Active Substance: ATORVASTATIN CALCIUM
     Dosage: 40 MG, EACH EVENING
     Route: 048
  3. VICTOZA [Concomitant]
     Active Substance: LIRAGLUTIDE
     Dosage: 1.8 MG, QID
     Route: 065
  4. COLCHICINE. [Concomitant]
     Active Substance: COLCHICINE
     Dosage: UNK UNK, PRN
     Route: 065
  5. WESTCORT [Concomitant]
     Active Substance: HYDROCORTISONE VALERATE
     Dosage: UNK UNK, UNKNOWN
     Route: 061
  6. ANTIVERT                           /00007101/ [Concomitant]
     Active Substance: MECLIZINE MONOHYDROCHLORIDE\NIACIN
     Dosage: UNK UNK, PRN
     Route: 048
  7. LYRICA [Concomitant]
     Active Substance: PREGABALIN
     Dosage: 150 MG, BID
     Route: 048
  8. MULTIVITAMIN WITH MINERALS [Concomitant]
     Active Substance: MINERALS\VITAMINS
     Dosage: UNK UNK, QD
     Route: 048
  9. ZYLOPRIM [Concomitant]
     Active Substance: ALLOPURINOL
     Dosage: 200 MG, QD
     Route: 048
  10. ASPIRIN                            /00002701/ [Concomitant]
     Active Substance: ASPIRIN
     Dosage: 81 MG, QD
     Route: 048
  11. HYDRODIURIL [Concomitant]
     Active Substance: HYDROCHLOROTHIAZIDE
     Dosage: 25 MG, QD
     Route: 048
  12. NIZORAL [Concomitant]
     Active Substance: KETOCONAZOLE
     Dosage: UNK UNK, QD
     Route: 061
  13. BYSTOLIC [Concomitant]
     Active Substance: NEBIVOLOL HYDROCHLORIDE
     Dosage: 20 MG, QD
     Route: 048
  14. ULTRAM [Concomitant]
     Active Substance: TRAMADOL HYDROCHLORIDE
     Dosage: UNK UNK, PRN
     Route: 048
  15. LOTRIMIN [Concomitant]
     Active Substance: CLOTRIMAZOLE
     Dosage: UNK UNK, BID
     Route: 061
  16. HUMULIN R U-500 [Suspect]
     Active Substance: INSULIN HUMAN
     Indication: TYPE 2 DIABETES MELLITUS
     Dosage: UNK UNK, UNKNOWN
     Route: 065
  17. VOLTAREN [Concomitant]
     Active Substance: DICLOFENAC SODIUM
     Dosage: 2 G, TID
     Route: 061
  18. HYDROCORTISONE                     /00140401/ [Concomitant]
     Dosage: UNK UNK, BID
     Route: 061

REACTIONS (6)
  - Obesity [Unknown]
  - Blood glucose increased [Unknown]
  - Erectile dysfunction [Unknown]
  - Type IIa hyperlipidaemia [Unknown]
  - Renovascular hypertension [Unknown]
  - Fall [Unknown]

NARRATIVE: CASE EVENT DATE: 20161205
